FAERS Safety Report 4665209-0 (Version None)
Quarter: 2005Q2

REPORT INFORMATION
  Report Type: 
  Country: None (occurrence: None)
  Receive Date: 20050518
  Receipt Date: 20050510
  Transmission Date: 20051028
  Serious: Yes (Disabling)
  Sender: FDA-Public Use
  Company Number: US-MERCK-0505USA01263

PATIENT
  Age: 70 Year
  Sex: Female

DRUGS (2)
  1. FOSAMAX [Suspect]
     Indication: OSTEOPOROSIS
     Route: 048
     Dates: start: 19950101, end: 20050509
  2. ESTROGENS (UNSPECIFIED) [Concomitant]
     Route: 065

REACTIONS (1)
  - ASEPTIC NECROSIS BONE [None]
